FAERS Safety Report 20676750 (Version 2)
Quarter: 2022Q2

REPORT INFORMATION
  Report Type: Report from Study
  Country: CA (occurrence: CA)
  Receive Date: 20220406
  Receipt Date: 20220428
  Transmission Date: 20220721
  Serious: Yes (Other)
  Sender: FDA-Public Use
  Company Number: CA-AMGEN-CANSL2022052566

PATIENT
  Age: 57 Year
  Sex: Female

DRUGS (1)
  1. AVSOLA [Suspect]
     Active Substance: INFLIXIMAB-AXXQ
     Indication: Crohn^s disease
     Dosage: 10 MILLIGRAM/KILOGRAM, Q4WK
     Route: 065
     Dates: start: 20220113

REACTIONS (2)
  - Diverticulitis [Unknown]
  - Off label use [Unknown]
